FAERS Safety Report 13395433 (Version 1)
Quarter: 2017Q2

REPORT INFORMATION
  Report Type: Spontaneous
  Country: US (occurrence: US)
  Receive Date: 20170403
  Receipt Date: 20170403
  Transmission Date: 20170830
  Serious: No
  Sender: FDA-Public Use
  Company Number: US-AUROBINDO-AUR-APL-2016-15629

PATIENT
  Sex: Male
  Weight: 81.65 kg

DRUGS (2)
  1. SERTRALINE [Suspect]
     Active Substance: SERTRALINE HYDROCHLORIDE
     Indication: OBSESSIVE-COMPULSIVE DISORDER
     Dosage: ONE HALF 25 MG TABLET BY MOUTH IN THE MORNING AND ONE HALF 25 MG TABLET IN THE EVENING
     Route: 048
     Dates: start: 2016, end: 201606
  2. ZOLOFT [Concomitant]
     Active Substance: SERTRALINE HYDROCHLORIDE
     Indication: OBSESSIVE-COMPULSIVE DISORDER

REACTIONS (6)
  - Sleep disorder [Recovering/Resolving]
  - Sleep paralysis [Recovered/Resolved]
  - Photopsia [Recovering/Resolving]
  - Abnormal dreams [Recovering/Resolving]
  - Visual impairment [Recovering/Resolving]
  - Product substitution issue [Recovering/Resolving]
